FAERS Safety Report 15604778 (Version 1)
Quarter: 2018Q4

REPORT INFORMATION
  Report Type: Spontaneous
  Country: US (occurrence: US)
  Receive Date: 20181109
  Receipt Date: 20181109
  Transmission Date: 20190205
  Serious: Yes (Death, Hospitalization)
  Sender: FDA-Public Use
  Company Number: None

PATIENT
  Age: 86 Year
  Sex: Female
  Weight: 60.1 kg

DRUGS (1)
  1. NIVOLUMAB [Suspect]
     Active Substance: NIVOLUMAB
     Indication: RENAL CELL CARCINOMA
     Dosage: ?          OTHER FREQUENCY:28 DAYS;?
     Route: 040
     Dates: start: 20180529, end: 20181015

REACTIONS (14)
  - Aphasia [None]
  - Asthenia [None]
  - Vomiting [None]
  - Mucosal dryness [None]
  - Renal tubular acidosis [None]
  - Delirium [None]
  - Diabetic ketoacidosis [None]
  - Lactic acidosis [None]
  - Metabolic acidosis [None]
  - Abdominal pain [None]
  - Dysarthria [None]
  - Somnolence [None]
  - Diarrhoea [None]
  - Small intestinal obstruction [None]

NARRATIVE: CASE EVENT DATE: 20181015
